FAERS Safety Report 23110777 (Version 1)
Quarter: 2023Q4

REPORT INFORMATION
  Report Type: Spontaneous
  Country: US (occurrence: None)
  Receive Date: 20231025
  Receipt Date: 20231025
  Transmission Date: 20240109
  Serious: Yes (Other)
  Sender: FDA-Public Use
  Company Number: None

PATIENT
  Sex: Male

DRUGS (7)
  1. ABIRATERONE ACETATE [Suspect]
     Active Substance: ABIRATERONE ACETATE
     Indication: Prostate cancer
     Route: 048
     Dates: start: 20210511
  2. B COMPLEX CAP [Concomitant]
  3. JARDIANCE TAB 10MG [Concomitant]
  4. LISINOPIRL TAB 20MG [Concomitant]
  5. METFORMIN TAB 500MG [Concomitant]
  6. MYRBETRIQ TAB 25MG [Concomitant]
  7. SIMVASTATIN [Concomitant]
     Active Substance: SIMVASTATIN

REACTIONS (2)
  - Surgery [None]
  - Intentional dose omission [None]
